FAERS Safety Report 9580237 (Version 1)
Quarter: 2013Q3

REPORT INFORMATION
  Report Type: Spontaneous
  Country: US (occurrence: None)
  Receive Date: 20130916
  Receipt Date: 20130916
  Transmission Date: 20140515
  Serious: Yes (Other)
  Sender: FDA-Public Use
  Company Number: JPI-P-029955

PATIENT
  Age: 61 Year
  Sex: Female
  Weight: 107.5 kg

DRUGS (12)
  1. XYREM [Suspect]
     Indication: FIBROMYALGIA
     Dosage: 4.5 GM (2.25 GM, 2 IN 1 D), ORAL
     Route: 048
     Dates: start: 20060809
  2. GLUCOSAMINE [Concomitant]
  3. VITAMIN D [Concomitant]
  4. FOLIC ACID [Concomitant]
  5. HYDRDOCHLOROTHIAZIDE [Concomitant]
  6. LEVOTHYROXINE [Concomitant]
  7. ANTI- DEPRESSANT DRUG [Concomitant]
  8. METFORMIN [Concomitant]
  9. RHEA [Concomitant]
  10. ESCITALOPRAM OXALATE [Concomitant]
  11. TRIAMCINOLONE ACETONIDE [Concomitant]
  12. METOPOLOL SUCCINATE [Concomitant]

REACTIONS (4)
  - Sleep apnoea syndrome [None]
  - Condition aggravated [None]
  - Ear infection [None]
  - Sinusitis [None]
